FAERS Safety Report 4889461-1 (Version None)
Quarter: 2006Q1

REPORT INFORMATION
  Report Type: 
  Country: None (occurrence: None)
  Receive Date: 20060120
  Receipt Date: 20060109
  Transmission Date: 20060701
  Serious: Yes (Hospitalization)
  Sender: FDA-Public Use
  Company Number: HQWYE281110JAN06

PATIENT
  Age: 62 Year
  Sex: Female

DRUGS (10)
  1. MYLOTARG [Suspect]
     Indication: MYELODYSPLASTIC SYNDROME
     Dosage: A SINGLE 5.7 MG DOSE, INTRAVENOUS
     Route: 042
     Dates: start: 20050926, end: 20050926
  2. ARSENIC TRIOXIDE (ARSENIC TRIOXIDE, ) [Suspect]
     Indication: MYELODYSPLASTIC SYNDROME
     Dosage: 19 MG 1X PER 1 DAY, INTRAVENOUS
     Route: 042
     Dates: start: 20050919, end: 20051208
  3. ALPHA-LIPON (THIOCTIC ACID) [Concomitant]
  4. MULTIVITAMINS, PLAIN (MULTIVITAMINS, PLAIN) [Concomitant]
  5. VITAMIN C (ASCORBIC ACID) [Concomitant]
  6. PYRIDOXINE (PYRIDOXINE) [Concomitant]
  7. CYANOCOBALAMIN [Concomitant]
  8. B COMPLEX (NICOTINAMIDE/PYRIDOXINE HYDROCHLORIDE/RIBOFLAVIN/THIAMINE H [Concomitant]
  9. UNSPECIFIED GASTROINTESTINAL AGENT (UNSPECIFIED GASTROINTESTINAL AGENT [Concomitant]
  10. ARIMIDEX ^ZENECA^ (ANASTROZOLE) [Concomitant]

REACTIONS (3)
  - ARTHRITIS [None]
  - FEBRILE NEUTROPENIA [None]
  - JOINT EFFUSION [None]
